FAERS Safety Report 4560845-4 (Version None)
Quarter: 2005Q1

REPORT INFORMATION
  Report Type: 
  Country: None (occurrence: None)
  Receive Date: 20050121
  Receipt Date: 20050111
  Transmission Date: 20050727
  Serious: Yes (Other)
  Sender: FDA-Public Use
  Company Number: 211647

PATIENT
  Age: 70 Year
  Sex: Male
  Weight: 84.4 kg

DRUGS (13)
  1. NUTROPIN AQ [Suspect]
     Indication: HYPOPITUITARISM
     Dosage: 0.5 MG, QD, SUBCUTANEOUS
     Route: 058
     Dates: start: 20001101
  2. TOPROL (METOPROLOL SUCCINATE) [Concomitant]
  3. PLAVIX [Concomitant]
  4. NYZAAR (HYDROCHLOROTHIAZIDE, LOSARTAN POTASSIUM) [Concomitant]
  5. CLONIDINE PATCH (CLONIDINE HYDROCHLORIDE) [Concomitant]
  6. PREDNISONE [Concomitant]
  7. PRILOSEC [Concomitant]
  8. SYNTHROID [Concomitant]
  9. REFRESH EYE DROPS (UNK INGREDIENTS) (OPHTHALMIC PREPARATIONS) [Concomitant]
  10. BETOPTIC [Concomitant]
  11. CELLUVISE EYE DROPS [Concomitant]
  12. TESTOSTERONE [Concomitant]
  13. FISH OIL [Concomitant]

REACTIONS (1)
  - DIABETES MELLITUS NON-INSULIN-DEPENDENT [None]
